FAERS Safety Report 12454947 (Version 2)
Quarter: 2016Q3

REPORT INFORMATION
  Report Type: Spontaneous
  Country: US (occurrence: US)
  Receive Date: 20160610
  Receipt Date: 20160720
  Transmission Date: 20161109
  Serious: No
  Sender: FDA-Public Use
  Company Number: US-PFIZER INC-2016270816

PATIENT
  Sex: Female

DRUGS (2)
  1. ADVIL [Suspect]
     Active Substance: IBUPROFEN
     Indication: ARTHRITIS
     Dosage: 6 DF, DAILY (6 CAPLETS PER DAY) FOR YEARS
  2. ADVIL [Suspect]
     Active Substance: IBUPROFEN
     Indication: NEUROPATHY PERIPHERAL

REACTIONS (3)
  - Arthritis [Unknown]
  - Condition aggravated [Unknown]
  - Drug ineffective [Unknown]
